FAERS Safety Report 8765647 (Version 2)
Quarter: 2012Q4

REPORT INFORMATION
  Report Type: 
  Country: US (occurrence: US)
  Receive Date: 20120903
  Receipt Date: 20121015
  Transmission Date: 20130627
  Serious: Yes (Death)
  Sender: FDA-Public Use
  Company Number: PHEH2012US017161

PATIENT
  Age: 72 Year
  Sex: Male

DRUGS (7)
  1. AFINITOR [Suspect]
     Indication: METASTATIC RENAL CELL CARCINOMA
     Dosage: 5 mg, daily
     Route: 048
  2. AXITINIB [Suspect]
     Dosage: 5 mg, UNK
     Route: 048
  3. LIPITOR [Concomitant]
  4. MULTIVITAMINS [Concomitant]
  5. FISH OIL [Concomitant]
  6. ASPIRIN [Concomitant]
  7. CALCIUM W/VITAMIN D NOS [Concomitant]

REACTIONS (6)
  - Neoplasm progression [Fatal]
  - Malignant neoplasm progression [Fatal]
  - Somnolence [Unknown]
  - Fluid intake reduced [Unknown]
  - Headache [Unknown]
  - Fatigue [Unknown]
